FAERS Safety Report 8557988-7 (Version None)
Quarter: 2012Q3

REPORT INFORMATION
  Report Type: 
  Country: None (occurrence: None)
  Receive Date: 20120801
  Receipt Date: 20120730
  Transmission Date: 20120928
  Serious: Yes (Other)
  Sender: FDA-Public Use
  Company Number: US-GLAXOSMITHKLINE-A0987493A

PATIENT
  Age: 60 Year
  Sex: Female

DRUGS (1)
  1. NICODERM CQ [Suspect]
     Indication: SMOKING CESSATION THERAPY
     Route: 062
     Dates: start: 20120615, end: 20120701

REACTIONS (7)
  - HYPOAESTHESIA [None]
  - SENSORY LOSS [None]
  - HYPERSENSITIVITY [None]
  - NIGHTMARE [None]
  - AGITATION [None]
  - STRESS [None]
  - BLINDNESS UNILATERAL [None]
